FAERS Safety Report 13122941 (Version 2)
Quarter: 2017Q1

REPORT INFORMATION
  Report Type: Report from Study
  Country: CN (occurrence: CN)
  Receive Date: 20170117
  Receipt Date: 20170215
  Transmission Date: 20170428
  Serious: Yes (Hospitalization)
  Sender: FDA-Public Use
  Company Number: CN-ASTELLAS-2017US001613

PATIENT
  Age: 85 Year
  Sex: Male

DRUGS (1)
  1. ERLOTINIB [Suspect]
     Active Substance: ERLOTINIB
     Indication: NON-SMALL CELL LUNG CANCER
     Route: 048
     Dates: start: 20160120

REACTIONS (5)
  - Hydrothorax [Unknown]
  - Poor quality sleep [Unknown]
  - Pneumonia [Unknown]
  - Lung infection [Unknown]
  - Pleural effusion [Unknown]

NARRATIVE: CASE EVENT DATE: 20161129
